FAERS Safety Report 15285586 (Version 3)
Quarter: 2019Q4

REPORT INFORMATION
  Report Type: Report from Study
  Country: DE (occurrence: DE)
  Receive Date: 20180816
  Receipt Date: 20191209
  Transmission Date: 20200122
  Serious: Yes (Other)
  Sender: FDA-Public Use
  Company Number: PHHY2015DE004133

PATIENT
  Age: 23 Year
  Sex: Female

DRUGS (3)
  1. GILENYA [Suspect]
     Active Substance: FINGOLIMOD HYDROCHLORIDE
     Dosage: UNK
     Route: 048
     Dates: start: 20180428
  2. GILENYA [Suspect]
     Active Substance: FINGOLIMOD HYDROCHLORIDE
     Indication: MULTIPLE SCLEROSIS
     Dosage: 0.5 MG, QD
     Route: 048
     Dates: start: 20140701, end: 20170508
  3. GILENYA [Suspect]
     Active Substance: FINGOLIMOD HYDROCHLORIDE
     Dosage: 0.5 MG, QD
     Route: 048
     Dates: start: 20170520, end: 20180427

REACTIONS (18)
  - Lymphocyte count decreased [Unknown]
  - Alopecia [Recovered/Resolved]
  - Respiratory tract infection [Recovered/Resolved]
  - Leukopenia [Unknown]
  - Cystitis [Recovered/Resolved]
  - White blood cell count decreased [Recovering/Resolving]
  - Nasopharyngitis [Recovered/Resolved]
  - Non-cardiac chest pain [Unknown]
  - Gastrointestinal infection [Recovered/Resolved]
  - Melanocytic naevus [Unknown]
  - Herpes zoster [Recovered/Resolved]
  - Intercostal neuralgia [Recovered/Resolved]
  - Peripheral swelling [Unknown]
  - Headache [Recovered/Resolved]
  - Nasopharyngitis [Recovered/Resolved]
  - Tonsillitis [Recovered/Resolved]
  - Nasopharyngitis [Recovered/Resolved]
  - Pain in extremity [Unknown]

NARRATIVE: CASE EVENT DATE: 20140702
